FAERS Safety Report 5583970-8 (Version None)
Quarter: 2008Q1

REPORT INFORMATION
  Report Type: 
  Country: None (occurrence: None)
  Receive Date: 20080108
  Receipt Date: 20071231
  Transmission Date: 20080703
  Serious: Yes (Hospitalization)
  Sender: FDA-Public Use
  Company Number: GB-WYE-G00831408

PATIENT
  Sex: Female

DRUGS (2)
  1. EFFEXOR XR [Suspect]
     Route: 048
     Dates: start: 20071101
  2. QUETIAPINE [Concomitant]
     Dosage: UNKNOWN

REACTIONS (2)
  - FALL [None]
  - SKIN LACERATION [None]
